FAERS Safety Report 7653920-9 (Version None)
Quarter: 2011Q3

REPORT INFORMATION
  Report Type: 
  Country: None (occurrence: None)
  Receive Date: 20110803
  Receipt Date: 20110722
  Transmission Date: 20111222
  Serious: Yes (Hospitalization, Other)
  Sender: FDA-Public Use
  Company Number: US-ELI_LILLY_AND_COMPANY-US201107006953

PATIENT
  Sex: Female

DRUGS (2)
  1. HUMALOG [Suspect]
     Indication: DIABETES MELLITUS
     Dosage: UNK, OTHER
     Dates: start: 20100101
  2. LEVEMIR [Concomitant]
     Dosage: UNK

REACTIONS (12)
  - MUSCLE DISORDER [None]
  - DERMATITIS CONTACT [None]
  - INJECTION SITE PAIN [None]
  - THROMBOSIS [None]
  - PAIN IN EXTREMITY [None]
  - FALL [None]
  - BLISTER [None]
  - INJECTION SITE HAEMATOMA [None]
  - CONTUSION [None]
  - LIMB INJURY [None]
  - RASH [None]
  - BLOOD GLUCOSE FLUCTUATION [None]
